FAERS Safety Report 8343297-8 (Version None)
Quarter: 2012Q2

REPORT INFORMATION
  Report Type: 
  Country: None (occurrence: None)
  Receive Date: 20120508
  Receipt Date: 20120501
  Transmission Date: 20120825
  Serious: Yes (Other)
  Sender: FDA-Public Use
  Company Number: PHHY2012IL037391

PATIENT
  Age: 45 Year
  Sex: Female

DRUGS (9)
  1. BLEOMYCIN SULFATE [Suspect]
     Indication: HODGKIN'S DISEASE
     Dosage: 10 MG/M2, UNK
  2. VINCRISTINE [Suspect]
     Indication: HODGKIN'S DISEASE
     Dosage: 1.4 MG/M2, UNK
  3. RADIOTHERAPY [Concomitant]
     Indication: HODGKIN'S DISEASE
     Dosage: 2700 MG/M2, UNK
  4. BLEOMYCIN SULFATE [Suspect]
     Dosage: 60 MG/M2, UNK
  5. PREDNISONE TAB [Suspect]
     Indication: HODGKIN'S DISEASE
     Dosage: 280 MG/M2, UNK
  6. ETOPOSIDE [Suspect]
     Indication: HODGKIN'S DISEASE
     Dosage: 300 MG/M2, UNK
  7. CYCLOPHOSPHAMIDE [Suspect]
     Indication: HODGKIN'S DISEASE
     Dosage: 650 MG/M2, UNK
  8. PROCARBAZINE HYDROCHLORIDE [Suspect]
     Indication: HODGKIN'S DISEASE
     Dosage: 700 MG/M2, UNK
  9. DOXORUBICIN HCL [Suspect]
     Indication: HODGKIN'S DISEASE
     Dosage: 25 MG/M2, UNK

REACTIONS (1)
  - RESPIRATORY DISORDER [None]
